FAERS Safety Report 4732959-7 (Version None)
Quarter: 2005Q3

REPORT INFORMATION
  Report Type: 
  Country: None (occurrence: None)
  Receive Date: 20050801
  Receipt Date: 20050719
  Transmission Date: 20060218
  Serious: Yes (Hospitalization)
  Sender: FDA-Public Use
  Company Number: FABR-11178

PATIENT
  Age: 78 Year
  Sex: Male
  Weight: 47 kg

DRUGS (12)
  1. FABRAZYME [Suspect]
     Indication: FABRY'S DISEASE
     Dosage: 47 MG Q2WKS IV
     Route: 042
     Dates: start: 20010308
  2. ENALAPRIL [Concomitant]
  3. FUROSEMIDE [Concomitant]
  4. ASPIRIN [Concomitant]
  5. CARVEDILOL [Concomitant]
  6. CERNITIN POLLEN EXTRACT [Concomitant]
  7. FAMOTIDINE [Concomitant]
  8. ETIZOLAM [Concomitant]
  9. WARFARIN POTASSIUM [Concomitant]
  10. ALLOPURINOL [Concomitant]
  11. MAGNESIUM OXIDE [Concomitant]
  12. BIFIDOBACTERIUM [Concomitant]

REACTIONS (1)
  - CARDIAC FAILURE CONGESTIVE [None]
